FAERS Safety Report 14978878 (Version 28)
Quarter: 2020Q4

REPORT INFORMATION
  Report Type: Spontaneous
  Country: FR (occurrence: FR)
  Receive Date: 20180606
  Receipt Date: 20201218
  Transmission Date: 20210113
  Serious: Yes (Other)
  Sender: FDA-Public Use
  Company Number: FR-ELI_LILLY_AND_COMPANY-FR201804004797

PATIENT
  Age: 0 Year
  Weight: 1.89 kg

DRUGS (128)
  1. FORLAX [Suspect]
     Active Substance: POLYETHYLENE GLYCOL 4000
     Indication: NORMOCHROMIC NORMOCYTIC ANAEMIA
     Dosage: 120 MG, DAILY
     Route: 064
     Dates: start: 20160930, end: 20170224
  2. FORLAX [Suspect]
     Active Substance: POLYETHYLENE GLYCOL 4000
     Indication: TYPE 2 DIABETES MELLITUS
     Dosage: 1 DF, DAILY
     Route: 064
     Dates: start: 20170313
  3. NICARDIPINE HYDROCHLORIDE. [Suspect]
     Active Substance: NICARDIPINE HYDROCHLORIDE
     Dosage: 50 MG, UNKNOWN
     Route: 064
     Dates: start: 20170313
  4. TARDYFERON [Suspect]
     Active Substance: FERROUS SULFATE
     Indication: NORMOCHROMIC NORMOCYTIC ANAEMIA
     Dosage: 1 DF, DAILY
     Route: 064
     Dates: start: 20170313, end: 20170914
  5. LOXEN                              /00639802/ [Suspect]
     Active Substance: NICARDIPINE HYDROCHLORIDE
     Indication: HYPERTENSION
     Dosage: 100 MG, UNKNOWN
     Route: 064
     Dates: start: 20170313, end: 20170405
  6. DIFFU-K [Suspect]
     Active Substance: POTASSIUM CHLORIDE
     Indication: HYPOKALAEMIA
     Dosage: 1200 MG, 2 TO 3 TIMES PER DAY
     Route: 064
     Dates: start: 20170804
  7. AMOXICILLINE                       /00249603/ [Suspect]
     Active Substance: AMOXICILLIN SODIUM
     Indication: PRODUCT USED FOR UNKNOWN INDICATION
     Dosage: 3 G, DAILY
     Route: 064
     Dates: start: 20170804, end: 20170811
  8. PROPANOLOL HYDROCHLORIDE [Suspect]
     Active Substance: PROPRANOLOL HYDROCHLORIDE
     Dosage: 25 MG, DAILY
     Route: 064
     Dates: start: 20170720
  9. HUMALOG [Suspect]
     Active Substance: INSULIN LISPRO
     Dosage: 7 UG/M2, DAILY
     Route: 064
     Dates: start: 20170224, end: 20170224
  10. ARIPIPRAZOLE. [Suspect]
     Active Substance: ARIPIPRAZOLE
     Dosage: 10 MG, DAILY
     Route: 064
     Dates: start: 20170224
  11. RAMIPRIL. [Suspect]
     Active Substance: RAMIPRIL
     Indication: HYPERTENSION
     Dosage: 2.5 MG, DAILY
     Route: 064
     Dates: start: 20160930, end: 20170224
  12. GLICLAZIDE [Suspect]
     Active Substance: GLICLAZIDE
     Indication: TYPE 2 DIABETES MELLITUS
     Dosage: 120 MG, DAILY
     Route: 064
     Dates: start: 20160930, end: 20170224
  13. TRAMADOL HYDROCHLORIDE. [Suspect]
     Active Substance: TRAMADOL HYDROCHLORIDE
     Indication: DIABETIC NEUROPATHY
     Dosage: 100 MG, DAILY
     Route: 064
     Dates: start: 20160930, end: 20170306
  14. NICARDIPINE HYDROCHLORIDE. [Suspect]
     Active Substance: NICARDIPINE HYDROCHLORIDE
     Dosage: UNK, UNKNOWN
     Route: 064
     Dates: start: 20170516
  15. LOXEN                              /00639802/ [Suspect]
     Active Substance: NICARDIPINE HYDROCHLORIDE
     Dosage: 50 MG, UNKNOWN
     Route: 064
     Dates: start: 20170313, end: 20170405
  16. LEVEMIR [Suspect]
     Active Substance: INSULIN DETEMIR
     Indication: TYPE 2 DIABETES MELLITUS
     Dosage: 10 IU, ONCE DAILY (QD)
     Route: 064
     Dates: start: 20160930, end: 20170224
  17. LAROXYL [Suspect]
     Active Substance: AMITRIPTYLINE HYDROCHLORIDE
     Indication: DIABETIC NEUROPATHY
     Dosage: 2 DF, DAILY
     Route: 064
     Dates: start: 20160930, end: 20170914
  18. LARGACTIL                          /00011901/ [Suspect]
     Active Substance: CHLORPROMAZINE
     Indication: BIPOLAR I DISORDER
     Dosage: 25 MG, DAILY
     Route: 064
     Dates: start: 20170720
  19. LASIX [Suspect]
     Active Substance: FUROSEMIDE
     Indication: HYPERTENSION
     Dosage: 40 MG, UNKNOWN
     Route: 064
     Dates: start: 20170516
  20. GABAPENTINE [Suspect]
     Active Substance: GABAPENTIN
     Indication: DIABETIC NEUROPATHY
     Dosage: 800 MG, DAILY
     Route: 064
     Dates: start: 20160930
  21. NICOPATCH [Suspect]
     Active Substance: NICOTINE
     Dosage: 7 MG, DAILY
     Route: 064
     Dates: start: 20170224, end: 20170516
  22. AMOXICILLINE                       /00249603/ [Suspect]
     Active Substance: AMOXICILLIN SODIUM
     Dosage: 1 G, DAILY
     Route: 064
     Dates: start: 201708, end: 20170914
  23. FOLINIC ACID [Suspect]
     Active Substance: LEUCOVORIN
     Indication: NORMOCHROMIC NORMOCYTIC ANAEMIA
     Dosage: 5 MG, ONCE DAILY (QD)
     Route: 064
     Dates: start: 20170224, end: 20170313
  24. FOLINIC ACID [Suspect]
     Active Substance: LEUCOVORIN
     Dosage: 5 MG, DAILY
     Route: 064
     Dates: start: 20170224, end: 20170914
  25. INSULIN PORCINE [Suspect]
     Active Substance: INSULIN PORK\INSULIN PURIFIED PORK
     Indication: TYPE 2 DIABETES MELLITUS
     Dosage: UNK, UNKNOWN
     Route: 064
     Dates: start: 20160930, end: 20170224
  26. METFORMIN [Suspect]
     Active Substance: METFORMIN HYDROCHLORIDE
     Dosage: 1700 MG, DAILY
     Route: 064
     Dates: start: 20170804
  27. HUMALOG [Suspect]
     Active Substance: INSULIN LISPRO
     Dosage: 7 UG/M2, DAILY
     Route: 064
     Dates: start: 20170224, end: 20170224
  28. ARIPIPRAZOLE. [Suspect]
     Active Substance: ARIPIPRAZOLE
     Indication: BIPOLAR I DISORDER
     Dosage: 10 MG, DAILY
     Route: 064
     Dates: start: 20160930, end: 20170224
  29. ARIPIPRAZOLE. [Suspect]
     Active Substance: ARIPIPRAZOLE
     Dosage: 10 MG, DAILY
     Route: 064
     Dates: start: 20170224
  30. FOLIC ACID. [Suspect]
     Active Substance: FOLIC ACID
     Indication: NORMOCHROMIC NORMOCYTIC ANAEMIA
     Dosage: 5 MG, DAILY
     Route: 064
     Dates: start: 20170224, end: 20170313
  31. NICARDIPINE HYDROCHLORIDE. [Suspect]
     Active Substance: NICARDIPINE HYDROCHLORIDE
     Indication: HYPERTENSION
     Dosage: 50 MG, BID
     Route: 064
     Dates: start: 20170405
  32. TARDYFERON [Suspect]
     Active Substance: FERROUS SULFATE
     Indication: NORMOCHROMIC NORMOCYTIC ANAEMIA
     Dosage: 1 DF, DAILY
     Route: 064
     Dates: start: 20170313, end: 20170914
  33. METHYLDOPA MSD [Suspect]
     Active Substance: METHYLDOPA
     Indication: HYPERTENSION
     Dosage: 1500 MG, DAILY
     Route: 064
     Dates: start: 20170720
  34. METHYLDOPA MSD [Suspect]
     Active Substance: METHYLDOPA
     Indication: HYPERTENSION
     Dosage: 1500 MG, DAILY
     Route: 064
     Dates: start: 20170720
  35. LANTUS [Suspect]
     Active Substance: INSULIN GLARGINE
     Dosage: 20 MG, DAILY
     Route: 064
     Dates: start: 20170224, end: 20170914
  36. LARGACTIL                          /00011901/ [Suspect]
     Active Substance: CHLORPROMAZINE
     Indication: HYPERTENSION
     Dosage: 0.5 DF, UNKNOWN
     Route: 064
  37. NICOPATCH [Suspect]
     Active Substance: NICOTINE
     Indication: EX-TOBACCO USER
     Dosage: 7 MG, DAILY
     Route: 064
     Dates: start: 20170224, end: 20170914
  38. NICOPATCH [Suspect]
     Active Substance: NICOTINE
     Indication: EX-TOBACCO USER
     Dosage: 7 MG, DAILY
     Route: 064
     Dates: start: 20170224, end: 20170914
  39. FOLINIC ACID [Suspect]
     Active Substance: LEUCOVORIN
     Dosage: 5 MG, DAILY
     Route: 064
     Dates: start: 20170224, end: 20170914
  40. METFORMIN [Suspect]
     Active Substance: METFORMIN HYDROCHLORIDE
     Indication: TYPE 2 DIABETES MELLITUS
     Dosage: 1700 MG, DAILY
     Route: 064
     Dates: start: 20160930, end: 20170224
  41. METFORMIN [Suspect]
     Active Substance: METFORMIN HYDROCHLORIDE
     Dosage: 850 MG, DAILY
     Route: 064
     Dates: start: 20170224
  42. PROPANOLOL HYDROCHLORIDE [Suspect]
     Active Substance: PROPRANOLOL HYDROCHLORIDE
     Indication: HYPERTENSION
     Dosage: 80 MG, DAILY
     Route: 064
     Dates: start: 20170516
  43. PROPANOLOL HYDROCHLORIDE [Suspect]
     Active Substance: PROPRANOLOL HYDROCHLORIDE
     Dosage: 25 MG, DAILY
     Route: 064
     Dates: start: 20170720
  44. CHLORPROMAZINE HYDROCHLORIDE. [Suspect]
     Active Substance: CHLORPROMAZINE HYDROCHLORIDE
     Indication: BIPOLAR I DISORDER
     Dosage: 25 MG, DAILY
     Route: 064
     Dates: start: 20170720
  45. CALCIUM FOLINATE [Suspect]
     Active Substance: LEUCOVORIN CALCIUM
     Indication: NORMOCHROMIC NORMOCYTIC ANAEMIA
     Dosage: 5 MG, DAILY
     Route: 064
     Dates: start: 20170224, end: 20170513
  46. FORLAX [Suspect]
     Active Substance: POLYETHYLENE GLYCOL 4000
     Indication: NORMOCHROMIC NORMOCYTIC ANAEMIA
     Dosage: 120 MG, DAILY
     Route: 064
     Dates: start: 20160930, end: 20170224
  47. FOLIC ACID. [Suspect]
     Active Substance: FOLIC ACID
     Dosage: 5 MG, DAILY
     Route: 064
     Dates: start: 20170313, end: 20170313
  48. TRAMADOL HYDROCHLORIDE. [Suspect]
     Active Substance: TRAMADOL HYDROCHLORIDE
     Indication: DIABETIC NEUROPATHY
     Dosage: 100 MG, DAILY
     Route: 064
     Dates: start: 20160930, end: 20170306
  49. NICARDIPINE HYDROCHLORIDE. [Suspect]
     Active Substance: NICARDIPINE HYDROCHLORIDE
     Dosage: 50 MG, UNKNOWN
     Route: 064
     Dates: start: 20170313
  50. LOXEN                              /00639802/ [Suspect]
     Active Substance: NICARDIPINE HYDROCHLORIDE
     Dosage: 50 MG, UNKNOWN
     Route: 064
     Dates: start: 20170313, end: 20170405
  51. LOXEN                              /00639802/ [Suspect]
     Active Substance: NICARDIPINE HYDROCHLORIDE
     Dosage: UNK, UNKNOWN
     Route: 064
     Dates: start: 20170516
  52. METHYLDOPA MSD [Suspect]
     Active Substance: METHYLDOPA
     Dosage: 500 MG, DAILY
     Route: 064
     Dates: start: 20170720
  53. LARGACTIL                          /00011901/ [Suspect]
     Active Substance: CHLORPROMAZINE
     Indication: HYPERTENSION
     Dosage: 0.5 DF, UNKNOWN
     Route: 064
  54. DIFFU-K [Suspect]
     Active Substance: POTASSIUM CHLORIDE
     Dosage: 3600 MG, DAILY
     Route: 064
     Dates: start: 20170804
  55. METFORMIN [Suspect]
     Active Substance: METFORMIN HYDROCHLORIDE
     Dosage: 1700 MG, DAILY
     Route: 064
     Dates: start: 20170804
  56. INSULIN [Suspect]
     Active Substance: INSULIN NOS
     Indication: TYPE 2 DIABETES MELLITUS
     Dosage: UNK
     Route: 064
     Dates: start: 20161230, end: 20170224
  57. PROPANOLOL HYDROCHLORIDE [Suspect]
     Active Substance: PROPRANOLOL HYDROCHLORIDE
     Indication: HYPERTENSION
     Dosage: 80 MG, DAILY
     Route: 064
     Dates: start: 20170516
  58. MACROGOL BIOGARAN [Suspect]
     Active Substance: POLYETHYLENE GLYCOLS
     Indication: CONSTIPATION
     Dosage: 1 DF, DAILY
     Route: 064
     Dates: start: 20160930, end: 20170405
  59. FORLAX [Suspect]
     Active Substance: POLYETHYLENE GLYCOL 4000
     Indication: CONSTIPATION
     Dosage: 1 DF, DAILY
     Route: 064
     Dates: start: 20160930, end: 20170405
  60. RAMIPRIL. [Suspect]
     Active Substance: RAMIPRIL
     Dosage: 2.5 MG, DAILY
     Route: 064
     Dates: start: 20170224
  61. FOLIC ACID. [Suspect]
     Active Substance: FOLIC ACID
     Indication: NORMOCHROMIC NORMOCYTIC ANAEMIA
     Dosage: 5 MG, DAILY
     Route: 064
     Dates: start: 20170224, end: 20170313
  62. FOLIC ACID. [Suspect]
     Active Substance: FOLIC ACID
     Dosage: 5 MG, DAILY
     Route: 064
     Dates: start: 20170224, end: 20170914
  63. TRAMADOL HYDROCHLORIDE. [Suspect]
     Active Substance: TRAMADOL HYDROCHLORIDE
     Dosage: 50 MG, DAILY
     Route: 064
     Dates: start: 20160930, end: 20170306
  64. TRAMADOL HYDROCHLORIDE. [Suspect]
     Active Substance: TRAMADOL HYDROCHLORIDE
     Dosage: 50 MG, DAILY
     Route: 064
     Dates: start: 20160930, end: 20170306
  65. LOXEN                              /00639802/ [Suspect]
     Active Substance: NICARDIPINE HYDROCHLORIDE
     Indication: HYPERTENSION
     Dosage: 100 MG, UNKNOWN
     Route: 064
     Dates: start: 20170313, end: 20170405
  66. METHYLDOPA MSD [Suspect]
     Active Substance: METHYLDOPA
     Dosage: 15000 MG, ONCE DAILY (QD)
     Route: 048
     Dates: start: 20170720
  67. LEVEMIR [Suspect]
     Active Substance: INSULIN DETEMIR
     Indication: TYPE 2 DIABETES MELLITUS
     Dosage: 10 IU, ONCE DAILY (QD)
     Route: 064
     Dates: start: 20160930, end: 20170224
  68. LAROXYL [Suspect]
     Active Substance: AMITRIPTYLINE HYDROCHLORIDE
     Indication: DIABETIC NEUROPATHY
     Dosage: 2 DF, DAILY
     Route: 064
     Dates: start: 20160930, end: 20170914
  69. LAROXYL [Suspect]
     Active Substance: AMITRIPTYLINE HYDROCHLORIDE
     Dosage: 2 DF, ONCE DAILY (QD)
     Dates: start: 20160930
  70. LARGACTIL                          /00011901/ [Suspect]
     Active Substance: CHLORPROMAZINE
     Indication: BIPOLAR I DISORDER
     Dosage: 25 MG, DAILY
     Route: 064
     Dates: start: 20170720
  71. GABAPENTINE [Suspect]
     Active Substance: GABAPENTIN
     Indication: DIABETIC NEUROPATHY
     Dosage: 800 MG, DAILY
     Route: 064
     Dates: start: 20160930
  72. AMOXICILLINE                       /00249603/ [Suspect]
     Active Substance: AMOXICILLIN SODIUM
     Dosage: 3 G, DAILY
     Route: 064
     Dates: start: 20170804, end: 20170804
  73. AMOXICILLINE                       /00249603/ [Suspect]
     Active Substance: AMOXICILLIN SODIUM
     Dosage: 3 G, DAILY
     Route: 064
     Dates: start: 20170804, end: 20170804
  74. AMOXICILLINE                       /00249603/ [Suspect]
     Active Substance: AMOXICILLIN SODIUM
     Dosage: 1 UNK, UNKNOWN
     Route: 064
     Dates: start: 20170804, end: 20170811
  75. INSULIN [Suspect]
     Active Substance: INSULIN NOS
     Indication: TYPE 2 DIABETES MELLITUS
     Dosage: UNK
     Route: 064
     Dates: start: 20161230, end: 20170224
  76. HUMALOG [Suspect]
     Active Substance: INSULIN LISPRO
     Indication: TYPE 2 DIABETES MELLITUS
     Dosage: 21 UG/M2, DAILY
     Route: 064
     Dates: start: 20170224, end: 20170914
  77. FORLAX [Suspect]
     Active Substance: POLYETHYLENE GLYCOL 4000
     Indication: TYPE 2 DIABETES MELLITUS
     Dosage: 1 DF, DAILY
     Route: 064
     Dates: start: 20170313
  78. GLICLAZIDE [Suspect]
     Active Substance: GLICLAZIDE
     Indication: TYPE 2 DIABETES MELLITUS
     Dosage: 120 MG, DAILY
     Route: 064
     Dates: start: 20160930, end: 20170224
  79. GLICLAZIDE [Suspect]
     Active Substance: GLICLAZIDE
     Dosage: 120 MG, DAILY
     Route: 064
     Dates: start: 20170224
  80. FOLIC ACID. [Suspect]
     Active Substance: FOLIC ACID
     Dosage: 5 MG, DAILY
     Route: 064
     Dates: start: 20170224, end: 20170914
  81. TRAMADOL HYDROCHLORIDE. [Suspect]
     Active Substance: TRAMADOL HYDROCHLORIDE
     Dosage: 50 MG, DAILY
     Route: 064
     Dates: start: 20170306
  82. TRAMADOL HYDROCHLORIDE. [Suspect]
     Active Substance: TRAMADOL HYDROCHLORIDE
     Dosage: 50 MG, DAILY
     Route: 064
     Dates: start: 20170306
  83. NICARDIPINE HYDROCHLORIDE. [Suspect]
     Active Substance: NICARDIPINE HYDROCHLORIDE
     Dosage: 50 MG, UNKNOWN
     Route: 064
     Dates: start: 20170405, end: 20170914
  84. NICARDIPINE HYDROCHLORIDE. [Suspect]
     Active Substance: NICARDIPINE HYDROCHLORIDE
     Dosage: UNK, UNKNOWN
     Route: 064
     Dates: start: 20170516
  85. LOXEN                              /00639802/ [Suspect]
     Active Substance: NICARDIPINE HYDROCHLORIDE
     Dosage: 50 MG, BID
     Route: 065
     Dates: start: 20170405, end: 20170914
  86. LAROXYL [Suspect]
     Active Substance: AMITRIPTYLINE HYDROCHLORIDE
     Dosage: 2 DF, ONCE DAILY (QD)
     Dates: start: 20160930
  87. LANTUS [Suspect]
     Active Substance: INSULIN GLARGINE
     Indication: TYPE 2 DIABETES MELLITUS
     Dosage: 20 IU, DAILY
     Route: 064
     Dates: start: 20170224, end: 20170914
  88. LANTUS [Suspect]
     Active Substance: INSULIN GLARGINE
     Dosage: 20 MG, DAILY
     Route: 064
     Dates: start: 20170224, end: 20170914
  89. LASIX [Suspect]
     Active Substance: FUROSEMIDE
     Dosage: 50 MG, UNKNOWN
     Route: 064
     Dates: start: 201705
  90. LASIX [Suspect]
     Active Substance: FUROSEMIDE
     Dosage: 50 MG, UNKNOWN
     Route: 064
     Dates: start: 201705
  91. AMOXICILLINE                       /00249603/ [Suspect]
     Active Substance: AMOXICILLIN SODIUM
     Dosage: 1 G, DAILY
     Route: 064
     Dates: start: 201708, end: 20170914
  92. AMOXICILLINE                       /00249603/ [Suspect]
     Active Substance: AMOXICILLIN SODIUM
     Dosage: 1 UNK, UNKNOWN
     Route: 064
     Dates: start: 20170804, end: 20170811
  93. INSULIN PORCINE [Suspect]
     Active Substance: INSULIN PORK\INSULIN PURIFIED PORK
     Indication: TYPE 2 DIABETES MELLITUS
     Dosage: UNK, UNKNOWN
     Route: 064
     Dates: start: 20160930, end: 20170224
  94. METFORMIN [Suspect]
     Active Substance: METFORMIN HYDROCHLORIDE
     Dosage: 850 MG, DAILY
     Route: 064
     Dates: start: 20160930, end: 20170224
  95. FORLAX [Suspect]
     Active Substance: POLYETHYLENE GLYCOL 4000
     Indication: CONSTIPATION
     Dosage: 1 DF, DAILY
     Route: 064
     Dates: start: 20160930, end: 20170405
  96. FOLIC ACID. [Suspect]
     Active Substance: FOLIC ACID
     Dosage: 5 MG, DAILY
     Route: 064
     Dates: start: 20170313, end: 20170313
  97. LABETALOL HCL [Suspect]
     Active Substance: LABETALOL HYDROCHLORIDE
     Indication: HYPERTENSION
     Dosage: 80 MG, DAILY
     Route: 064
     Dates: start: 20170516, end: 20170914
  98. LOXEN                              /00639802/ [Suspect]
     Active Substance: NICARDIPINE HYDROCHLORIDE
     Dosage: 50 MG, BID
     Route: 065
     Dates: start: 20170405, end: 20170914
  99. LOXEN                              /00639802/ [Suspect]
     Active Substance: NICARDIPINE HYDROCHLORIDE
     Dosage: 01 DF, DAILY
     Route: 064
     Dates: start: 20170313, end: 20170405
  100. LOXEN                              /00639802/ [Suspect]
     Active Substance: NICARDIPINE HYDROCHLORIDE
     Dosage: UNK, UNKNOWN
     Route: 064
     Dates: start: 20170516
  101. METHYLDOPA MSD [Suspect]
     Active Substance: METHYLDOPA
     Dosage: 500 MG, DAILY
     Route: 064
     Dates: start: 20170720
  102. DIFFU-K [Suspect]
     Active Substance: POTASSIUM CHLORIDE
     Dosage: 3600 MG, DAILY
     Route: 064
     Dates: start: 20170804
  103. GABAPENTINE [Suspect]
     Active Substance: GABAPENTIN
     Dosage: 80 MG, ONCE DAILY (QD)
     Route: 048
     Dates: start: 20160930
  104. GABAPENTINE [Suspect]
     Active Substance: GABAPENTIN
     Dosage: 400 MG, DAILY
     Route: 064
     Dates: start: 20160930
  105. GABAPENTINE [Suspect]
     Active Substance: GABAPENTIN
     Dosage: 400 MG, DAILY
     Route: 064
     Dates: start: 20160930
  106. NICOPATCH [Suspect]
     Active Substance: NICOTINE
     Dosage: 7 MG, DAILY
     Route: 064
     Dates: start: 20170224, end: 20170516
  107. METFORMIN [Suspect]
     Active Substance: METFORMIN HYDROCHLORIDE
     Dosage: 850 MG, DAILY
     Route: 064
     Dates: start: 20160930, end: 20170224
  108. METFORMIN [Suspect]
     Active Substance: METFORMIN HYDROCHLORIDE
     Dosage: 850 MG, DAILY
     Route: 064
     Dates: start: 20170224
  109. CHLORPROMAZINE HYDROCHLORIDE. [Suspect]
     Active Substance: CHLORPROMAZINE HYDROCHLORIDE
     Indication: BIPOLAR I DISORDER
     Dosage: 25 MG, DAILY
     Route: 064
     Dates: start: 20170720
  110. HUMALOG [Suspect]
     Active Substance: INSULIN LISPRO
     Indication: TYPE 2 DIABETES MELLITUS
     Dosage: 21 UG/M2, DAILY
     Route: 064
     Dates: start: 20170224, end: 20170914
  111. ARIPIPRAZOLE. [Suspect]
     Active Substance: ARIPIPRAZOLE
     Indication: BIPOLAR I DISORDER
     Dosage: 10 MG, DAILY
     Route: 064
     Dates: start: 20160930, end: 20170224
  112. RAMIPRIL. [Suspect]
     Active Substance: RAMIPRIL
     Indication: HYPERTENSION
     Dosage: 2.5 MG, DAILY
     Route: 064
     Dates: start: 20160930, end: 20170224
  113. RAMIPRIL. [Suspect]
     Active Substance: RAMIPRIL
     Dosage: 2.5 MG, DAILY
     Route: 064
     Dates: start: 20170224
  114. GLICLAZIDE [Suspect]
     Active Substance: GLICLAZIDE
     Dosage: 120 MG, DAILY
     Route: 064
     Dates: start: 20170224
  115. LABETALOL HCL [Suspect]
     Active Substance: LABETALOL HYDROCHLORIDE
     Indication: HYPERTENSION
     Dosage: 80 MG, DAILY
     Route: 064
     Dates: start: 20170516, end: 20170914
  116. NICARDIPINE HYDROCHLORIDE. [Suspect]
     Active Substance: NICARDIPINE HYDROCHLORIDE
     Indication: HYPERTENSION
     Dosage: 50 MG, BID
     Route: 064
     Dates: start: 20170405
  117. NICARDIPINE HYDROCHLORIDE. [Suspect]
     Active Substance: NICARDIPINE HYDROCHLORIDE
     Dosage: 50 MG, UNKNOWN
     Route: 064
     Dates: start: 20170405, end: 20170914
  118. LOXEN                              /00639802/ [Suspect]
     Active Substance: NICARDIPINE HYDROCHLORIDE
     Dosage: 01 DF, DAILY
     Route: 064
     Dates: start: 20170313, end: 20170405
  119. METHYLDOPA MSD [Suspect]
     Active Substance: METHYLDOPA
     Dosage: 15000 MG, ONCE DAILY (QD)
     Route: 048
     Dates: start: 20170720
  120. LANTUS [Suspect]
     Active Substance: INSULIN GLARGINE
     Indication: TYPE 2 DIABETES MELLITUS
     Dosage: 20 IU, DAILY
     Route: 064
     Dates: start: 20170224, end: 20170914
  121. LASIX [Suspect]
     Active Substance: FUROSEMIDE
     Indication: HYPERTENSION
     Dosage: 40 MG, UNKNOWN
     Route: 064
     Dates: start: 20170516
  122. DIFFU-K [Suspect]
     Active Substance: POTASSIUM CHLORIDE
     Indication: HYPOKALAEMIA
     Dosage: 1200 MG, 2 TO 3 TIMES PER DAY
     Route: 064
     Dates: start: 20170804
  123. GABAPENTINE [Suspect]
     Active Substance: GABAPENTIN
     Dosage: 80 MG, ONCE DAILY (QD)
     Route: 048
     Dates: start: 20160930
  124. AMOXICILLINE                       /00249603/ [Suspect]
     Active Substance: AMOXICILLIN SODIUM
     Indication: PRODUCT USED FOR UNKNOWN INDICATION
     Dosage: 3 G, DAILY
     Route: 064
     Dates: start: 20170804, end: 20170811
  125. FOLINIC ACID [Suspect]
     Active Substance: LEUCOVORIN
     Indication: NORMOCHROMIC NORMOCYTIC ANAEMIA
     Dosage: 5 MG, ONCE DAILY (QD)
     Route: 064
     Dates: start: 20170224, end: 20170313
  126. METFORMIN [Suspect]
     Active Substance: METFORMIN HYDROCHLORIDE
     Indication: TYPE 2 DIABETES MELLITUS
     Dosage: 1700 MG, DAILY
     Route: 064
     Dates: start: 20160930, end: 20170224
  127. MACROGOL BIOGARAN [Suspect]
     Active Substance: POLYETHYLENE GLYCOLS
     Indication: CONSTIPATION
     Dosage: 1 DF, DAILY
     Route: 064
     Dates: start: 20160930, end: 20170405
  128. CALCIUM FOLINATE [Suspect]
     Active Substance: LEUCOVORIN CALCIUM
     Indication: NORMOCHROMIC NORMOCYTIC ANAEMIA
     Dosage: 5 MG, DAILY
     Route: 064
     Dates: start: 20170224, end: 20170513

REACTIONS (5)
  - Low birth weight baby [Unknown]
  - Premature baby [Not Recovered/Not Resolved]
  - Foetal disorder [Unknown]
  - Foetal exposure during pregnancy [Recovered/Resolved]
  - Neutropenia neonatal [Not Recovered/Not Resolved]

NARRATIVE: CASE EVENT DATE: 201709
